FAERS Safety Report 12959619 (Version 1)
Quarter: 2016Q4

REPORT INFORMATION
  Report Type: Spontaneous
  Country: BR (occurrence: BR)
  Receive Date: 20161121
  Receipt Date: 20161121
  Transmission Date: 20170207
  Serious: Yes (Death, Hospitalization)
  Sender: FDA-Public Use
  Company Number: PHHY2016BR154063

PATIENT
  Sex: Male
  Weight: 50 kg

DRUGS (1)
  1. DOXAZOSIN SANDOZ [Suspect]
     Active Substance: DOXAZOSIN MESYLATE
     Indication: PROSTATE CANCER
     Dosage: 2 MG, QD
     Route: 048

REACTIONS (3)
  - Death [Fatal]
  - Dizziness [Unknown]
  - Haemorrhage [Unknown]
